FAERS Safety Report 17518455 (Version 6)
Quarter: 2022Q4

REPORT INFORMATION
  Report Type: Report from Study
  Country: KR (occurrence: KR)
  Receive Date: 20200309
  Receipt Date: 20221212
  Transmission Date: 20230113
  Serious: Yes (Death, Hospitalization, Other)
  Sender: FDA-Public Use
  Company Number: KR-AMGEN-KORNI2020021376

PATIENT
  Age: 57 Year
  Sex: Male
  Weight: 53.1 kg

DRUGS (12)
  1. CARFILZOMIB [Suspect]
     Active Substance: CARFILZOMIB
     Indication: Plasma cell myeloma
     Dosage: 30 MILLIGRAM, QD
     Route: 042
     Dates: start: 20191115
  2. CARFILZOMIB [Suspect]
     Active Substance: CARFILZOMIB
     Dosage: 40 MILLIGRAM, 2 TIMES/WK
     Route: 042
     Dates: start: 20191122, end: 20191228
  3. DEXAMETHASONE [Suspect]
     Active Substance: DEXAMETHASONE
     Indication: Plasma cell myeloma
     Dosage: 40 MILLIGRAM
     Route: 065
     Dates: start: 20191227
  4. LENALIDOMIDE [Suspect]
     Active Substance: LENALIDOMIDE
     Indication: Plasma cell myeloma
     Dosage: 525 MILLIGRAM
     Route: 065
     Dates: start: 20191213
  5. VACRAX [ACICLOVIR] [Concomitant]
     Dosage: 400 MILLIGRAM
     Dates: start: 20191015, end: 20200122
  6. FLUCOZOLE [Concomitant]
     Dosage: 100 MILLIGRAM
     Dates: start: 20191015, end: 20200131
  7. NEXIUM [Concomitant]
     Active Substance: ESOMEPRAZOLE MAGNESIUM
     Dosage: 20 MILLIGRAM
     Dates: start: 20191015, end: 20200203
  8. NICORANDIL [Concomitant]
     Active Substance: NICORANDIL
     Dosage: 5 MILLIGRAM
     Dates: start: 20170403, end: 20200214
  9. CRESTOR [Concomitant]
     Active Substance: ROSUVASTATIN CALCIUM
     Dosage: 10 MILLIGRAM
     Dates: start: 20160202, end: 20200214
  10. BISOPROLOL FUMARATE [Concomitant]
     Active Substance: BISOPROLOL FUMARATE
     Dosage: 2.5 MILLIGRAM
     Dates: start: 20170309, end: 20200214
  11. FENTORA [Concomitant]
     Active Substance: FENTANYL CITRATE
     Dosage: 200 MICROGRAM
     Dates: start: 20170124, end: 20200216
  12. FENTANYL [Concomitant]
     Active Substance: FENTANYL
     Dosage: 50 MICROGRAM
     Dates: start: 20191213, end: 20191213

REACTIONS (8)
  - Pneumonia [Fatal]
  - Hyperkalaemia [Unknown]
  - Neutrophil count decreased [Unknown]
  - Neutrophil count decreased [Unknown]
  - Influenza [Unknown]
  - Constipation [Unknown]
  - Diarrhoea [Unknown]
  - Abdominal pain [Unknown]

NARRATIVE: CASE EVENT DATE: 20191122
